FAERS Safety Report 8802277 (Version 2)
Quarter: 2012Q4

REPORT INFORMATION
  Report Type: 
  Country: US (occurrence: US)
  Receive Date: 20120921
  Receipt Date: 20121101
  Transmission Date: 20130627
  Serious: Yes (Other)
  Sender: FDA-Public Use
  Company Number: US-ROCHE-1065793

PATIENT
  Sex: Female
  Weight: 58.11 kg

DRUGS (4)
  1. ACCUTANE [Suspect]
     Indication: ACNE CYSTIC
     Route: 048
     Dates: start: 19910513, end: 19911112
  2. ACCUTANE [Suspect]
     Route: 048
     Dates: start: 20091128, end: 201012
  3. ACCUTANE [Suspect]
     Route: 048
     Dates: start: 20100301
  4. CLARAVIS [Suspect]
     Indication: ACNE CYSTIC
     Route: 065

REACTIONS (5)
  - Colitis ulcerative [Unknown]
  - Inflammatory bowel disease [Unknown]
  - Depression [Unknown]
  - Blood triglycerides increased [Unknown]
  - Stress [Unknown]
